FAERS Safety Report 25061003 (Version 1)
Quarter: 2025Q1

REPORT INFORMATION
  Report Type: Other
  Country: IN (occurrence: IN)
  Receive Date: 20250310
  Receipt Date: 20250310
  Transmission Date: 20250408
  Serious: Yes (Life-Threatening, Hospitalization, Other)
  Sender: Kanchan Healthcare
  Company Number: IN-Kanchan Healthcare INC-2172595

PATIENT
  Age: 36 Year
  Sex: Male

DRUGS (10)
  1. LACOSAMIDE [Suspect]
     Active Substance: LACOSAMIDE
     Indication: Epilepsy
  2. LEVETIRACETAM [Concomitant]
     Active Substance: LEVETIRACETAM
  3. SEVOFLURANE [Concomitant]
     Active Substance: SEVOFLURANE
  4. ROCURONIUM BROMIDE [Concomitant]
     Active Substance: ROCURONIUM BROMIDE
  5. PROPOFOL [Concomitant]
     Active Substance: PROPOFOL
  6. FENTANYL [Concomitant]
     Active Substance: FENTANYL
  7. CLOBAZAM [Concomitant]
     Active Substance: CLOBAZAM
  8. FLUOXETINE [Concomitant]
     Active Substance: FLUOXETINE HYDROCHLORIDE
  9. OXCARBAZEPINE [Concomitant]
     Active Substance: OXCARBAZEPINE
  10. VALPROATE SODIUM [Concomitant]
     Active Substance: VALPROATE SODIUM

REACTIONS (1)
  - Ictal bradycardia syndrome [Recovered/Resolved]
